FAERS Safety Report 11392923 (Version 2)
Quarter: 2015Q4

REPORT INFORMATION
  Report Type: Spontaneous
  Country: US (occurrence: US)
  Receive Date: 20150818
  Receipt Date: 20151110
  Transmission Date: 20160304
  Serious: Yes (Hospitalization)
  Sender: FDA-Public Use
  Company Number: US-SA-2015SA122524

PATIENT
  Sex: Female

DRUGS (2)
  1. AMPHOTERICIN B. [Concomitant]
     Active Substance: AMPHOTERICIN B
  2. LEMTRADA [Suspect]
     Active Substance: ALEMTUZUMAB
     Route: 041

REACTIONS (2)
  - Lung disorder [Unknown]
  - Meningitis [Unknown]
